FAERS Safety Report 6671428-4 (Version None)
Quarter: 2010Q2

REPORT INFORMATION
  Report Type: 
  Country: None (occurrence: None)
  Receive Date: 20100407
  Receipt Date: 20100323
  Transmission Date: 20101027
  Serious: Yes (Hospitalization)
  Sender: FDA-Public Use
  Company Number: FR-ABBOTT-10P-056-0636029-02

PATIENT
  Age: 43 Year
  Sex: Female

DRUGS (3)
  1. HUMIRA [Suspect]
     Indication: CROHN'S DISEASE
     Route: 058
     Dates: start: 20090403, end: 20090630
  2. HUMIRA [Suspect]
     Route: 058
     Dates: start: 20090731, end: 20090801
  3. HUMIRA [Suspect]
     Route: 058
     Dates: start: 20091012, end: 20091012

REACTIONS (2)
  - ABDOMINAL PAIN [None]
  - ARTHRALGIA [None]
